FAERS Safety Report 13030768 (Version 1)
Quarter: 2016Q4

REPORT INFORMATION
  Report Type: Report from Study
  Country: CA (occurrence: CA)
  Receive Date: 20161215
  Receipt Date: 20161215
  Transmission Date: 20170207
  Serious: Yes (Death)
  Sender: FDA-Public Use
  Company Number: PHHY2016CA172653

PATIENT
  Age: 77 Year
  Sex: Male

DRUGS (2)
  1. ACLASTA [Suspect]
     Active Substance: ZOLEDRONIC ACID
     Indication: OSTEOPOROSIS
     Dosage: 5 MG, UNK
     Route: 042
     Dates: start: 20150112
  2. ACLASTA [Suspect]
     Active Substance: ZOLEDRONIC ACID
     Dosage: UNK
     Route: 065
     Dates: start: 20160125

REACTIONS (1)
  - Death [Fatal]

NARRATIVE: CASE EVENT DATE: 20161121
